FAERS Safety Report 7767380-0 (Version None)
Quarter: 2011Q3

REPORT INFORMATION
  Report Type: 
  Country: None (occurrence: None)
  Receive Date: 20110922
  Receipt Date: 20100527
  Transmission Date: 20111222
  Serious: No
  Sender: FDA-Public Use
  Company Number: US-ASTRAZENECA-2010SE49643

PATIENT
  Age: 50 Year
  Sex: Male

DRUGS (2)
  1. LAMICTAL [Concomitant]
  2. SEROQUEL [Suspect]
     Dosage: 100 TO 300 MG
     Route: 048
     Dates: start: 20040419

REACTIONS (4)
  - HEPATIC ENZYME INCREASED [None]
  - TYPE 2 DIABETES MELLITUS [None]
  - ALCOHOL USE [None]
  - HYPERLIPIDAEMIA [None]
